FAERS Safety Report 6935721-X (Version None)
Quarter: 2010Q3

REPORT INFORMATION
  Report Type: 
  Country: None (occurrence: None)
  Receive Date: 20100823
  Receipt Date: 20100809
  Transmission Date: 20110219
  Serious: Yes (Other)
  Sender: FDA-Public Use
  Company Number: GB-SOLVAY-00310004381

PATIENT
  Age: 54 Year
  Sex: Male

DRUGS (2)
  1. ORLISTAT [Concomitant]
     Indication: OVERWEIGHT
     Dosage: DAILY DOSE: 360 MILLIGRAM(S)
     Route: 048
     Dates: start: 20050601, end: 20060601
  2. TESTOSTERONE [Suspect]
     Indication: BLOOD TESTOSTERONE DECREASED
     Dosage: DAILY DOSE:  UNKNOWN
     Route: 062
     Dates: start: 20051101, end: 20060701

REACTIONS (1)
  - ARTHRALGIA [None]
